FAERS Safety Report 12787418 (Version 6)
Quarter: 2016Q4

REPORT INFORMATION
  Report Type: Report from Study
  Country: GB (occurrence: GB)
  Receive Date: 20160928
  Receipt Date: 20161228
  Transmission Date: 20170207
  Serious: Yes (Other)
  Sender: FDA-Public Use
  Company Number: GB-UCBSA-2016037062

PATIENT
  Sex: Female

DRUGS (3)
  1. AMITRIPTYLINE [Concomitant]
     Active Substance: AMITRIPTYLINE
     Indication: PRODUCT USED FOR UNKNOWN INDICATION
     Dosage: 20 MG, ONCE DAILY (QD)
     Route: 048
  2. BRIVARACETAM [Suspect]
     Active Substance: BRIVARACETAM
     Indication: PARTIAL SEIZURES
     Dosage: UNK
     Dates: end: 20161109
  3. ZONISAMIDE. [Concomitant]
     Active Substance: ZONISAMIDE
     Indication: PRODUCT USED FOR UNKNOWN INDICATION
     Dosage: 200 MG, 2X/DAY (BID)
     Route: 048

REACTIONS (5)
  - Generalised tonic-clonic seizure [Not Recovered/Not Resolved]
  - Unevaluable event [Unknown]
  - Seizure [Not Recovered/Not Resolved]
  - Change in seizure presentation [Not Recovered/Not Resolved]
  - Mood altered [Not Recovered/Not Resolved]

NARRATIVE: CASE EVENT DATE: 20160920
